FAERS Safety Report 7406427-8 (Version None)
Quarter: 2011Q2

REPORT INFORMATION
  Report Type: 
  Country: None (occurrence: None)
  Receive Date: 20110411
  Receipt Date: 20110208
  Transmission Date: 20111010
  Serious: Yes (Hospitalization, Other)
  Sender: FDA-Public Use
  Company Number: US-BAYER-201034757NA

PATIENT
  Age: 21 Year
  Sex: Female
  Weight: 90.703 kg

DRUGS (4)
  1. HOODIA [Concomitant]
  2. YASMIN [Suspect]
     Indication: CONTRACEPTION
     Dosage: UNK
     Dates: start: 20060701, end: 20070601
  3. FEXOFENADINE [Concomitant]
     Indication: MULTIPLE ALLERGIES
     Dosage: UNK
     Dates: start: 20040101
  4. ZITHROMAX [Concomitant]
     Indication: UPPER RESPIRATORY TRACT INFECTION
     Dosage: UNK
     Dates: start: 20070501

REACTIONS (3)
  - DYSPNOEA [None]
  - CHEST PAIN [None]
  - PULMONARY EMBOLISM [None]
